FAERS Safety Report 4320957-7 (Version None)
Quarter: 2004Q1

REPORT INFORMATION
  Report Type: 
  Country: None (occurrence: None)
  Receive Date: 20040318
  Receipt Date: 20040309
  Transmission Date: 20041129
  Serious: Yes (Disabling)
  Sender: FDA-Public Use
  Company Number: MPS1-10157

PATIENT
  Age: 12 Year
  Sex: Female

DRUGS (1)
  1. ALDURAZYME [Suspect]
     Indication: MUCOPOLYSACCHARIDOSIS I
     Dosage: 0.58 MG/KG QWK IV
     Route: 042
     Dates: start: 20030611

REACTIONS (3)
  - DESMOID TUMOUR [None]
  - DIFFICULTY IN WALKING [None]
  - DYSSTASIA [None]
